FAERS Safety Report 23154789 (Version 1)
Quarter: 2023Q4

REPORT INFORMATION
  Report Type: Other
  Country: NL (occurrence: None)
  Receive Date: 20231107
  Receipt Date: 20231107
  Transmission Date: 20240110
  Serious: No
  Sender: FDA-Public Use
  Company Number: NL-ROCHE-2372856

PATIENT
  Age: 29 Year
  Sex: Female
  Weight: 71.9 kg

DRUGS (66)
  1. OCRELIZUMAB [Suspect]
     Active Substance: OCRELIZUMAB
     Indication: Relapsing-remitting multiple sclerosis
     Dosage: 300MG/ 260 ML
     Route: 042
     Dates: start: 20190517, end: 20190517
  2. OCRELIZUMAB [Suspect]
     Active Substance: OCRELIZUMAB
     Route: 042
     Dates: start: 20191114, end: 20191114
  3. OCRELIZUMAB [Suspect]
     Active Substance: OCRELIZUMAB
     Route: 042
     Dates: start: 20190611, end: 20190611
  4. OCRELIZUMAB [Suspect]
     Active Substance: OCRELIZUMAB
     Route: 042
     Dates: start: 20200522, end: 20200522
  5. OCRELIZUMAB [Suspect]
     Active Substance: OCRELIZUMAB
     Route: 042
     Dates: start: 20201127, end: 20201127
  6. OCRELIZUMAB [Suspect]
     Active Substance: OCRELIZUMAB
     Route: 042
     Dates: start: 20210528, end: 20210528
  7. OCRELIZUMAB [Suspect]
     Active Substance: OCRELIZUMAB
     Route: 042
     Dates: start: 20211126, end: 20211126
  8. OCRELIZUMAB [Suspect]
     Active Substance: OCRELIZUMAB
     Route: 042
     Dates: start: 20220520, end: 20220520
  9. OCRELIZUMAB [Suspect]
     Active Substance: OCRELIZUMAB
     Route: 042
     Dates: start: 20221116, end: 20221116
  10. FLUTICASONPROPIONAAT [Concomitant]
     Indication: Seasonal allergy
     Dosage: IN (INTRANASAL) PRN (AS NEEDED) SPRAY UG
     Route: 045
     Dates: start: 201903, end: 20230524
  11. LEVOCABASTINE [Concomitant]
     Active Substance: LEVOCABASTINE
     Indication: Seasonal allergy
     Dosage: IN (INTRANASAL), PRN (AS NEEDED)
     Dates: start: 2014
  12. LEVOCETIRIZINE [Concomitant]
     Active Substance: LEVOCETIRIZINE
     Indication: Seasonal allergy
     Route: 048
  13. DEXTROAMPHETAMINE [Concomitant]
     Active Substance: DEXTROAMPHETAMINE
     Indication: Attention deficit hyperactivity disorder
     Route: 048
  14. DEXTROAMPHETAMINE [Concomitant]
     Active Substance: DEXTROAMPHETAMINE
     Route: 048
     Dates: end: 20200217
  15. DEXTROAMPHETAMINE [Concomitant]
     Active Substance: DEXTROAMPHETAMINE
     Route: 048
     Dates: start: 20200218, end: 20230625
  16. DEXTROAMPHETAMINE [Concomitant]
     Active Substance: DEXTROAMPHETAMINE
     Route: 048
     Dates: start: 20230626, end: 20230720
  17. DEXTROAMPHETAMINE [Concomitant]
     Active Substance: DEXTROAMPHETAMINE
     Route: 048
     Dates: start: 20230721, end: 20230824
  18. DEXTROAMPHETAMINE [Concomitant]
     Active Substance: DEXTROAMPHETAMINE
     Route: 048
     Dates: start: 20230825
  19. TEMAZEPAM [Concomitant]
     Active Substance: TEMAZEPAM
     Indication: Insomnia
     Route: 048
     Dates: end: 20191223
  20. TEMAZEPAM [Concomitant]
     Active Substance: TEMAZEPAM
     Route: 048
     Dates: start: 20230621
  21. DICLOFENAC [Concomitant]
     Active Substance: DICLOFENAC
     Route: 048
     Dates: start: 20190605, end: 20200901
  22. ACETAMINOPHEN [Concomitant]
     Active Substance: ACETAMINOPHEN
     Route: 048
  23. ACETAMINOPHEN [Concomitant]
     Active Substance: ACETAMINOPHEN
     Route: 048
     Dates: start: 20190517, end: 20190517
  24. ACETAMINOPHEN [Concomitant]
     Active Substance: ACETAMINOPHEN
     Route: 048
     Dates: start: 20190611, end: 20190611
  25. ACETAMINOPHEN [Concomitant]
     Active Substance: ACETAMINOPHEN
     Route: 048
     Dates: start: 20191114, end: 20191114
  26. ACETAMINOPHEN [Concomitant]
     Active Substance: ACETAMINOPHEN
     Route: 048
     Dates: start: 20200522, end: 20200522
  27. ACETAMINOPHEN [Concomitant]
     Active Substance: ACETAMINOPHEN
     Dosage: PRN (AS NEEDED)
     Route: 048
     Dates: start: 20210528, end: 20210528
  28. ACETAMINOPHEN [Concomitant]
     Active Substance: ACETAMINOPHEN
     Route: 048
     Dates: start: 20220520, end: 20220520
  29. ACETAMINOPHEN [Concomitant]
     Active Substance: ACETAMINOPHEN
     Route: 042
     Dates: start: 20201127, end: 20201127
  30. ACETAMINOPHEN [Concomitant]
     Active Substance: ACETAMINOPHEN
     Route: 042
     Dates: start: 20211126, end: 20211126
  31. ACETAMINOPHEN [Concomitant]
     Active Substance: ACETAMINOPHEN
     Route: 048
     Dates: start: 20221116, end: 20221116
  32. ACETAMINOPHEN [Concomitant]
     Active Substance: ACETAMINOPHEN
     Route: 048
     Dates: start: 20201125
  33. RANITIDINE [Concomitant]
     Active Substance: RANITIDINE
     Dosage: ONCE BEFORE INFUSION
     Route: 048
     Dates: start: 20190517, end: 20190517
  34. CLEMASTINE [Concomitant]
     Active Substance: CLEMASTINE
     Dosage: ONCE BEFORE INFUSION
     Route: 042
     Dates: start: 20190517, end: 20190517
  35. PREDNISOLONE [Concomitant]
     Active Substance: PREDNISOLONE
     Dosage: ONCE BEFORE INFUSION
     Route: 042
     Dates: start: 20190517, end: 20190517
  36. PREDNISOLONE [Concomitant]
     Active Substance: PREDNISOLONE
     Dosage: ONCE BEFORE INFUSION
     Route: 042
     Dates: start: 20190611, end: 20190611
  37. PREDNISOLONE [Concomitant]
     Active Substance: PREDNISOLONE
     Route: 042
     Dates: start: 20191114, end: 20191114
  38. PREDNISOLONE [Concomitant]
     Active Substance: PREDNISOLONE
     Route: 042
     Dates: start: 20200522, end: 20200522
  39. PREDNISOLONE [Concomitant]
     Active Substance: PREDNISOLONE
     Route: 042
     Dates: start: 20201127, end: 20201127
  40. PREDNISOLONE [Concomitant]
     Active Substance: PREDNISOLONE
     Route: 042
     Dates: start: 20210528, end: 20210528
  41. PREDNISOLONE [Concomitant]
     Active Substance: PREDNISOLONE
     Route: 042
     Dates: start: 20211126, end: 20211126
  42. PREDNISOLONE [Concomitant]
     Active Substance: PREDNISOLONE
     Route: 042
     Dates: start: 20220520, end: 20220520
  43. PREDNISOLONE [Concomitant]
     Active Substance: PREDNISOLONE
     Route: 042
     Dates: start: 20221116, end: 20221116
  44. CLEMASTINE FUMARATE [Concomitant]
     Active Substance: CLEMASTINE FUMARATE
     Dosage: ONCE BEFORE INFUSION
     Route: 042
     Dates: start: 20190611, end: 20190611
  45. CLEMASTINE FUMARATE [Concomitant]
     Active Substance: CLEMASTINE FUMARATE
     Route: 042
     Dates: start: 20191114, end: 20191114
  46. CLEMASTINE FUMARATE [Concomitant]
     Active Substance: CLEMASTINE FUMARATE
     Dosage: ONCE?BEFORE?INFUSION
     Route: 042
     Dates: start: 20200522, end: 20200522
  47. CLEMASTINE FUMARATE [Concomitant]
     Active Substance: CLEMASTINE FUMARATE
     Dosage: ONCE?BEFORE?INFUSION
     Route: 042
     Dates: start: 20201127, end: 20201127
  48. CLEMASTINE FUMARATE [Concomitant]
     Active Substance: CLEMASTINE FUMARATE
     Dosage: ONCE?BEFORE?INFUSION
     Route: 042
     Dates: start: 20210528, end: 20210528
  49. CLEMASTINE FUMARATE [Concomitant]
     Active Substance: CLEMASTINE FUMARATE
     Dosage: ONCE BEFORE INFUSION
     Route: 042
     Dates: start: 20211126, end: 20211126
  50. CLEMASTINE FUMARATE [Concomitant]
     Active Substance: CLEMASTINE FUMARATE
     Route: 042
     Dates: start: 20220520, end: 20220520
  51. CLEMASTINE FUMARATE [Concomitant]
     Active Substance: CLEMASTINE FUMARATE
     Route: 042
     Dates: start: 20221116, end: 20221116
  52. ZANTAC [Concomitant]
     Active Substance: RANITIDINE HYDROCHLORIDE
     Dosage: ONCE BEFORE INFUSION
     Route: 048
     Dates: start: 20190611, end: 20190611
  53. VITAMIN D3 [Concomitant]
     Active Substance: CHOLECALCIFEROL
     Indication: Prophylaxis
     Route: 048
     Dates: start: 20200203
  54. DORMICUM [Concomitant]
     Route: 048
     Dates: start: 20191011
  55. MELATONIN [Concomitant]
     Active Substance: MELATONIN
     Route: 048
     Dates: start: 20200304, end: 20201125
  56. QUETIAPINE [Concomitant]
     Active Substance: QUETIAPINE
     Route: 048
     Dates: start: 20200304, end: 20200317
  57. QUETIAPINE [Concomitant]
     Active Substance: QUETIAPINE
     Route: 048
     Dates: start: 20200318, end: 20230620
  58. SUMATRIPTAN [Concomitant]
     Active Substance: SUMATRIPTAN
     Route: 045
     Dates: start: 20201125
  59. PFIZER-BIONTECH COVID-19 VACCINE [Concomitant]
     Active Substance: TOZINAMERAN
     Indication: Prophylaxis
     Dosage: SECOND DOSE ON /AUG/2021
     Route: 030
     Dates: start: 202107, end: 202107
  60. PROMETHAZINE [Concomitant]
     Active Substance: PROMETHAZINE HYDROCHLORIDE
     Route: 048
     Dates: start: 20230824
  61. PROMETHAZINE [Concomitant]
     Active Substance: PROMETHAZINE HYDROCHLORIDE
     Route: 048
     Dates: start: 20230824
  62. PROMETHAZINE [Concomitant]
     Active Substance: PROMETHAZINE HYDROCHLORIDE
     Route: 030
     Dates: start: 20230821, end: 20230821
  63. LORAZEPAM [Concomitant]
     Active Substance: LORAZEPAM
     Route: 048
     Dates: start: 20230909
  64. NITROFURANTOIN [Concomitant]
     Active Substance: NITROFURANTOIN
     Route: 048
     Dates: start: 20230919, end: 20230919
  65. NITROFURANTOIN [Concomitant]
     Active Substance: NITROFURANTOIN
     Route: 048
     Dates: start: 20231004, end: 20231011
  66. NITROFURANTOIN [Concomitant]
     Active Substance: NITROFURANTOIN
     Route: 048
     Dates: start: 20230801, end: 20230806

REACTIONS (3)
  - White blood cell count increased [Not Recovered/Not Resolved]
  - Nasopharyngitis [Recovered/Resolved]
  - Influenza [Recovered/Resolved]

NARRATIVE: CASE EVENT DATE: 20190531
